FAERS Safety Report 7547953-0 (Version None)
Quarter: 2011Q2

REPORT INFORMATION
  Report Type: 
  Country: None (occurrence: None)
  Receive Date: 20110615
  Receipt Date: 20110609
  Transmission Date: 20111010
  Serious: No
  Sender: FDA-Public Use
  Company Number: US-BIOGENIDEC-2011BI021663

PATIENT
  Sex: Female

DRUGS (4)
  1. AVONEX [Concomitant]
     Indication: MULTIPLE SCLEROSIS
     Route: 030
     Dates: start: 20071110
  2. AVONEX [Concomitant]
     Route: 030
     Dates: start: 20030308
  3. TYSABRI [Suspect]
     Route: 042
     Dates: start: 20080501, end: 20100528
  4. TYSABRI [Suspect]
     Indication: MULTIPLE SCLEROSIS
     Route: 042
     Dates: start: 20100811, end: 20101109

REACTIONS (4)
  - ARTHROPATHY [None]
  - SLEEP DISORDER [None]
  - HYPERSOMNIA [None]
  - FEELING ABNORMAL [None]
